FAERS Safety Report 9184423 (Version 2)
Quarter: 2013Q1

REPORT INFORMATION
  Report Type: Report from Study
  Country: BE (occurrence: BE)
  Receive Date: 20130322
  Receipt Date: 20130327
  Transmission Date: 20140127
  Serious: Yes (Other)
  Sender: FDA-Public Use
  Company Number: BE-BAYER-2013-033573

PATIENT
  Age: 65 Year
  Sex: Male

DRUGS (11)
  1. NEXAVAR [Suspect]
     Indication: HEPATIC CANCER METASTATIC
     Dosage: DAILY DOSE 600 MG
     Dates: start: 20120101, end: 20130311
  2. NEXAVAR [Suspect]
     Indication: HEPATIC CANCER METASTATIC
     Dosage: 3 TIMES A DAY (2 IN MORNING, 1 IN EVENING)
  3. MOXONIDINE [Concomitant]
     Dosage: 0.4 MG, OM
  4. DILTIAZEM [Concomitant]
     Dosage: 360 MG, OM
  5. ZESTRIL [Concomitant]
     Dosage: 20 MG, OM
  6. PANTOPRAZOLE SODIUM [Concomitant]
     Dosage: 20 MG, OM
  7. LOSFERRON [Concomitant]
     Dosage: UNK
  8. FOLAVIT [Concomitant]
     Dosage: 0.4 MG, OM
  9. BEFACT [Concomitant]
     Dosage: ONCE A DAY AT NOON
  10. ASAFLOW [Concomitant]
     Dosage: 80 MG, OM
  11. CALCIUM [CALCIUM,COLECALCIFEROL] [Concomitant]
     Dosage: UNK

REACTIONS (1)
  - Hepatocellular carcinoma [None]
